FAERS Safety Report 8400374-0 (Version None)
Quarter: 2012Q2

REPORT INFORMATION
  Report Type: 
  Country: None (occurrence: None)
  Receive Date: 20120531
  Receipt Date: 20120529
  Transmission Date: 20120825
  Serious: Yes (Death)
  Sender: FDA-Public Use
  Company Number: US-ACTELION-A-NJ2012-65800

PATIENT

DRUGS (19)
  1. EPOPROSTENOL SODIUM [Suspect]
     Indication: PULMONARY ARTERIAL HYPERTENSION
     Dosage: 50 NG/KG, PER MIN
     Route: 041
     Dates: start: 20101105, end: 20120513
  2. TRACLEER [Suspect]
     Dosage: 62.5 MG, BID
     Route: 048
     Dates: start: 20100401, end: 20100101
  3. ALDACTONE [Concomitant]
  4. PROTONIX [Concomitant]
  5. REVATIO [Concomitant]
  6. COLACE [Concomitant]
  7. TRACLEER [Suspect]
     Indication: PULMONARY ARTERIAL HYPERTENSION
     Dosage: 125 MG, BID
     Route: 048
     Dates: start: 20100608
  8. DIGOXIN [Concomitant]
  9. ALBUTEROL [Concomitant]
  10. TRACLEER [Suspect]
     Dosage: 125 MG, BID
     Route: 048
     Dates: start: 20090707, end: 20100401
  11. COUMADIN [Concomitant]
  12. OXYGEN [Concomitant]
  13. SYNTHROID [Concomitant]
  14. SPIRIVA [Concomitant]
  15. TORSEMIDE [Concomitant]
  16. TRACLEER [Suspect]
     Dosage: 62.5 MG, BID
     Route: 048
     Dates: start: 20090521, end: 20090706
  17. PREDNISONE TAB [Concomitant]
  18. ALLEGRA [Concomitant]
  19. VENTOLIN [Concomitant]

REACTIONS (1)
  - DEATH [None]
